FAERS Safety Report 4507425-4 (Version None)
Quarter: 2004Q4

REPORT INFORMATION
  Report Type: 
  Country: None (occurrence: None)
  Receive Date: 20041118
  Receipt Date: 20041111
  Transmission Date: 20050328
  Serious: Yes (Death)
  Sender: FDA-Public Use
  Company Number: USA-2004-0017202

PATIENT
  Age: 14 Year
  Sex: Male
  Weight: 59.6 kg

DRUGS (2)
  1. OXYCONTIN [Suspect]
  2. XANAX [Suspect]

REACTIONS (7)
  - BRONCHOPNEUMONIA [None]
  - COMA [None]
  - DYSPNOEA [None]
  - HEPATIC STEATOSIS [None]
  - MULTIPLE DRUG OVERDOSE [None]
  - SUDDEN DEATH [None]
  - VICTIM OF HOMICIDE [None]
